FAERS Safety Report 6241131-3 (Version None)
Quarter: 2009Q2

REPORT INFORMATION
  Report Type: 
  Country: None (occurrence: None)
  Receive Date: 20090619
  Receipt Date: 20090619
  Transmission Date: 20091009
  Serious: No
  Sender: FDA-Public Use
  Company Number: None

PATIENT
  Age: 69 Year
  Sex: Male
  Weight: 74.8435 kg

DRUGS (1)
  1. ZICAM  MATRIXX INITIATIVES, INC. [Suspect]
     Indication: NASOPHARYNGITIS
     Dosage: ONE SPRAY TWICE DAILY NASAL
     Route: 045
     Dates: start: 20071206, end: 20071207

REACTIONS (2)
  - AGEUSIA [None]
  - ANOSMIA [None]
